FAERS Safety Report 23652312 (Version 1)
Quarter: 2024Q1

REPORT INFORMATION
  Report Type: Spontaneous
  Country: US (occurrence: US)
  Receive Date: 20240320
  Receipt Date: 20240320
  Transmission Date: 20240410
  Serious: No
  Sender: FDA-Public Use
  Company Number: US-NEBO-PC013874

PATIENT
  Sex: Female

DRUGS (1)
  1. MONOFERRIC [Suspect]
     Active Substance: FERRIC DERISOMALTOSE
     Indication: Product used for unknown indication
     Route: 050
     Dates: start: 20240308, end: 20240308

REACTIONS (3)
  - Eye pruritus [Unknown]
  - Dysstasia [Unknown]
  - Malaise [Unknown]

NARRATIVE: CASE EVENT DATE: 20240308
